FAERS Safety Report 10993969 (Version 3)
Quarter: 2015Q2

REPORT INFORMATION
  Report Type: Report from Study
  Country: IN (occurrence: IN)
  Receive Date: 20150407
  Receipt Date: 20150508
  Transmission Date: 20150821
  Serious: Yes (Life-Threatening, Hospitalization)
  Sender: FDA-Public Use
  Company Number: IN-CELGENE-IND-2015035311

PATIENT
  Age: 48 Year
  Sex: Female
  Weight: 74 kg

DRUGS (6)
  1. ATEN [Concomitant]
     Indication: HYPERTENSION
     Dosage: 450 MILLIGRAM
     Route: 048
     Dates: start: 2014
  2. RANTAC [Concomitant]
     Active Substance: RANITIDINE HYDROCHLORIDE
     Indication: PROPHYLAXIS
     Route: 048
     Dates: start: 20150303, end: 20150307
  3. NUCOXIA [Concomitant]
     Active Substance: ETORICOXIB
     Indication: ABDOMINAL PAIN
     Dosage: 90 MILLIGRAM
     Route: 048
     Dates: start: 20150303, end: 20150305
  4. DULCOLAX [Concomitant]
     Active Substance: BISACODYL OR DOCUSATE SODIUM
     Indication: CONSTIPATION
     Dosage: 25 MILLIGRAM
     Route: 048
     Dates: start: 20150303, end: 20150304
  5. ABRAXANE [Suspect]
     Active Substance: PACLITAXEL
     Indication: BREAST CANCER
     Route: 041
     Dates: start: 20150228, end: 20150228
  6. DULCOLAX [Concomitant]
     Active Substance: BISACODYL OR DOCUSATE SODIUM
     Route: 048
     Dates: start: 20150310, end: 20150311

REACTIONS (2)
  - Laryngeal inflammation [Recovered/Resolved]
  - White blood cell count decreased [Recovered/Resolved]

NARRATIVE: CASE EVENT DATE: 20150306
